FAERS Safety Report 8880360 (Version 1)
Quarter: 2012Q4

REPORT INFORMATION
  Report Type: 
  Country: DK (occurrence: DK)
  Receive Date: 20121031
  Receipt Date: 20121031
  Transmission Date: 20130627
  Serious: Yes (Other)
  Sender: FDA-Public Use
  Company Number: PHHY2012DK097664

PATIENT
  Sex: Male

DRUGS (2)
  1. CORODIL [Suspect]
     Route: 048
  2. VIAGRA [Concomitant]

REACTIONS (1)
  - Erectile dysfunction [Unknown]
